FAERS Safety Report 7207401-7 (Version None)
Quarter: 2011Q1

REPORT INFORMATION
  Report Type: 
  Country: None (occurrence: None)
  Receive Date: 20110103
  Receipt Date: 20101221
  Transmission Date: 20110831
  Serious: Yes (Hospitalization, Other)
  Sender: FDA-Public Use
  Company Number: PHHY2010US67421

PATIENT
  Sex: Female
  Weight: 85.8 kg

DRUGS (29)
  1. GLEEVEC [Suspect]
     Indication: CHRONIC MYELOID LEUKAEMIA
     Dosage: 400 MG, QD
     Route: 048
     Dates: start: 20100501
  2. GLEEVEC [Suspect]
     Dosage: 100 MG, UNK
     Route: 048
  3. LEVAQUIN [Concomitant]
  4. CALCIUM [Concomitant]
  5. LEVOTHYROXINE [Concomitant]
  6. METOPROLOL [Concomitant]
  7. POTASSIUM [Concomitant]
  8. VITAMIN D [Concomitant]
  9. NEURONTIN [Concomitant]
  10. FISH OIL [Concomitant]
  11. GABAPENTIN [Concomitant]
  12. ALLOPURINOL [Concomitant]
     Dosage: 600MG
  13. OMEGA-3 FATTY ACIDS [Concomitant]
  14. POTASSIUM [Concomitant]
  15. GLEEVEC [Suspect]
     Dosage: 200 MG, UNK
     Route: 048
  16. PRILOSEC [Concomitant]
  17. TOPROL-XL [Concomitant]
  18. INSULIN [Concomitant]
  19. IRON [Concomitant]
  20. MUCINEX [Concomitant]
  21. ALLEGRA [Concomitant]
  22. CEPHALEXIN [Concomitant]
  23. COENZYME Q10 [Concomitant]
  24. STEROIDS NOS [Concomitant]
  25. HUMULIN 70/30 [Concomitant]
  26. OMEPRAZOLE [Concomitant]
  27. FEXOFENADINE HCL [Concomitant]
  28. CODEINE [Concomitant]
  29. KEFLEX [Concomitant]

REACTIONS (18)
  - NEUTROPENIA [None]
  - WEIGHT INCREASED [None]
  - DYSPNOEA [None]
  - BLOOD GLUCOSE INCREASED [None]
  - BLADDER OPERATION [None]
  - HYPOTENSION [None]
  - UPPER RESPIRATORY TRACT INFECTION [None]
  - ANAEMIA [None]
  - COUGH [None]
  - PNEUMONIA [None]
  - ABDOMINAL PAIN UPPER [None]
  - GENE MUTATION IDENTIFICATION TEST POSITIVE [None]
  - BLOOD CREATININE INCREASED [None]
  - FATIGUE [None]
  - FLUID OVERLOAD [None]
  - PYREXIA [None]
  - BRONCHITIS [None]
  - DYSGEUSIA [None]
